FAERS Safety Report 15308985 (Version 4)
Quarter: 2019Q1

REPORT INFORMATION
  Report Type: Report from Study
  Country: None (occurrence: US)
  Receive Date: 20180823
  Receipt Date: 20190324
  Transmission Date: 20190417
  Serious: Yes (Hospitalization, Other)
  Sender: FDA-Public Use
  Company Number: US-ABBVIE-18K-163-2455794-00

PATIENT
  Age: 53 Year
  Sex: Female

DRUGS (1)
  1. HUMIRA [Suspect]
     Active Substance: ADALIMUMAB
     Indication: COLITIS ULCERATIVE
     Route: 058

REACTIONS (22)
  - Female genital tract fistula [Unknown]
  - Sexual dysfunction [Unknown]
  - Depression [Unknown]
  - Gastroenteritis [Unknown]
  - Hospitalisation [Unknown]
  - Constipation [Unknown]
  - Procedural pain [Recovering/Resolving]
  - Asthma [Unknown]
  - Injection site pain [Unknown]
  - Abdominal hernia obstructive [Unknown]
  - Incontinence [Unknown]
  - Neuralgia [Recovering/Resolving]
  - Vaginal infection [Unknown]
  - Injection site papule [Unknown]
  - Pain [Unknown]
  - Frustration tolerance decreased [Unknown]
  - Bipolar disorder [Unknown]
  - Neuropathy peripheral [Recovering/Resolving]
  - Fatigue [Not Recovered/Not Resolved]
  - Stress [Unknown]
  - Fistula [Not Recovered/Not Resolved]
  - Fibromyalgia [Unknown]

NARRATIVE: CASE EVENT DATE: 20181202
